FAERS Safety Report 11451212 (Version 1)
Quarter: 2015Q3

REPORT INFORMATION
  Report Type: Spontaneous
  Country: CA (occurrence: CA)
  Receive Date: 20150903
  Receipt Date: 20150903
  Transmission Date: 20151125
  Serious: Yes (Death)
  Sender: FDA-Public Use
  Company Number: CA-TEVA-590840ACC

PATIENT
  Age: 50 Year
  Sex: Male

DRUGS (4)
  1. ZOPICLONE [Concomitant]
     Active Substance: ZOPICLONE
  2. DIAZEPAM. [Concomitant]
     Active Substance: DIAZEPAM
  3. LORAZEPAM. [Concomitant]
     Active Substance: LORAZEPAM
  4. VENLAFAXINE XR [Suspect]
     Active Substance: VENLAFAXINE HYDROCHLORIDE
     Indication: PRODUCT USED FOR UNKNOWN INDICATION
     Route: 065

REACTIONS (2)
  - Loss of consciousness [Fatal]
  - Alcohol withdrawal syndrome [Fatal]
